FAERS Safety Report 14346219 (Version 3)
Quarter: 2018Q1

REPORT INFORMATION
  Report Type: Spontaneous
  Country: US (occurrence: US)
  Receive Date: 20180103
  Receipt Date: 20180305
  Transmission Date: 20180509
  Serious: No
  Sender: FDA-Public Use
  Company Number: US-PFIZER INC-2017555116

PATIENT
  Age: 74 Year
  Sex: Male

DRUGS (1)
  1. SUTENT [Suspect]
     Active Substance: SUNITINIB MALATE
     Indication: RENAL NEOPLASM
     Dosage: 50 MG, CYCLIC (TAKE 1 CAPSULE DAILY FOR 2 WEEKS ON ONE WEEK OFF)
     Route: 048
     Dates: start: 201712

REACTIONS (7)
  - Decreased appetite [Unknown]
  - Skin wrinkling [Unknown]
  - Throat irritation [Unknown]
  - Irritability [Unknown]
  - Anxiety [Unknown]
  - Diarrhoea [Unknown]
  - Hallucination [Unknown]

NARRATIVE: CASE EVENT DATE: 201712
